FAERS Safety Report 5997095-0 (Version None)
Quarter: 2008Q4

REPORT INFORMATION
  Report Type: 
  Country: None (occurrence: None)
  Receive Date: 20081212
  Receipt Date: 20081030
  Transmission Date: 20090506
  Serious: No
  Sender: FDA-Public Use
  Company Number: US-ABBOTT-08P-163-0484731-00

PATIENT
  Sex: Female
  Weight: 54.48 kg

DRUGS (5)
  1. HUMIRA [Suspect]
     Indication: PSORIATIC ARTHROPATHY
     Route: 058
     Dates: start: 20080401, end: 20080926
  2. HUMIRA [Suspect]
     Route: 058
     Dates: start: 20081010
  3. METHOTREXATE [Interacting]
     Indication: PSORIATIC ARTHROPATHY
     Route: 058
     Dates: end: 20080905
  4. METHOTREXATE [Interacting]
     Route: 048
     Dates: start: 20080905, end: 20080915
  5. ALENDRONATE SODIUM [Concomitant]
     Indication: OSTEOPOROSIS
     Route: 048

REACTIONS (5)
  - DRUG INTERACTION [None]
  - HEPATIC ENZYME INCREASED [None]
  - JOINT SWELLING [None]
  - MUSCULOSKELETAL STIFFNESS [None]
  - PAIN [None]
